FAERS Safety Report 16138784 (Version 2)
Quarter: 2019Q4

REPORT INFORMATION
  Report Type: Report from Study
  Country: DE (occurrence: DE)
  Receive Date: 20190330
  Receipt Date: 20191028
  Transmission Date: 20200122
  Serious: Yes (Hospitalization, Other)
  Sender: FDA-Public Use
  Company Number: PHHY2019DE033830

PATIENT
  Age: 52 Year
  Sex: Male
  Weight: 65 kg

DRUGS (21)
  1. EXJADE [Suspect]
     Active Substance: DEFERASIROX
     Indication: MYELODYSPLASTIC SYNDROME
     Dosage: 21 MG/KG (BODYWEIGHT/DAY=4 TABLETS A 360MG)
     Route: 065
     Dates: start: 20180810, end: 20190123
  2. HYDROXYCARBAMIDE [Suspect]
     Active Substance: HYDROXYUREA
     Dosage: 1000 MG, (1000 MG-0-1000 MG) BID
     Route: 065
     Dates: start: 20190305, end: 20190408
  3. PREDNISOLONE. [Concomitant]
     Active Substance: PREDNISOLONE
     Dosage: 7.5 MG, EVERY 2 DAYS (3.75 MG)
     Route: 065
     Dates: start: 20180903
  4. PANTOPRAZOLE [Concomitant]
     Active Substance: PANTOPRAZOLE
     Indication: PROPHYLAXIS
     Dosage: 40 MG, QD
     Route: 065
     Dates: start: 201805
  5. JAKAVI [Suspect]
     Active Substance: RUXOLITINIB
     Indication: PRIMARY MYELOFIBROSIS
     Dosage: 15 MG, BID
     Route: 065
     Dates: start: 20181003, end: 20181018
  6. HYDROXYCARBAMIDE [Suspect]
     Active Substance: HYDROXYUREA
     Indication: PRIMARY MYELOFIBROSIS
     Dosage: 500 MG, BID
     Route: 065
     Dates: start: 20180907, end: 20180916
  7. JAKAVI [Suspect]
     Active Substance: RUXOLITINIB
     Indication: MYELODYSPLASTIC SYNDROME
     Dosage: 20 MG, BID
     Route: 065
     Dates: start: 201805, end: 20181002
  8. JAKAVI [Suspect]
     Active Substance: RUXOLITINIB
     Dosage: 10 MG, BID
     Route: 065
     Dates: start: 20181019
  9. HYDROXYCARBAMIDE [Suspect]
     Active Substance: HYDROXYUREA
     Dosage: 500 MG, TID
     Route: 065
     Dates: start: 20180923, end: 20180924
  10. HYDROXYCARBAMIDE [Suspect]
     Active Substance: HYDROXYUREA
     Indication: MYELODYSPLASTIC SYNDROME
     Dosage: 500 MG, QD
     Route: 065
     Dates: start: 201805, end: 20180906
  11. HYDROXYCARBAMIDE [Suspect]
     Active Substance: HYDROXYUREA
     Dosage: 500 MG, BID
     Route: 065
     Dates: start: 20180925, end: 20181011
  12. HYDROXYCARBAMIDE [Suspect]
     Active Substance: HYDROXYUREA
     Dosage: 500 MG 3X WEEKLY + 1000 MG 4X WEEKLY(785.7 MG DAILY DOSE)
     Route: 065
     Dates: start: 20181013, end: 20181023
  13. PREDNISOLONE. [Concomitant]
     Active Substance: PREDNISOLONE
     Indication: RHEUMATOID ARTHRITIS
     Dosage: 5 MG, QD
     Route: 065
     Dates: start: 201805, end: 20180902
  14. TORASEMIDE [Concomitant]
     Active Substance: TORSEMIDE
     Indication: RHEUMATOID ARTHRITIS
     Dosage: 10 MG, QD
     Route: 065
     Dates: start: 201805
  15. HYDROXYCARBAMIDE [Suspect]
     Active Substance: HYDROXYUREA
     Dosage: 500 MG, QD
     Route: 065
     Dates: start: 20180917, end: 20180922
  16. MACROGOL [Concomitant]
     Active Substance: POLYETHYLENE GLYCOLS
     Indication: LARGE INTESTINAL OBSTRUCTION
     Dosage: 13.7 G, PRN
     Route: 065
     Dates: start: 201805
  17. FRESUBIN PROTEIN ENERGY [Concomitant]
     Indication: CACHEXIA
     Dosage: 2 DF, QD
     Route: 065
     Dates: start: 201805
  18. EXJADE [Suspect]
     Active Substance: DEFERASIROX
     Indication: PRIMARY MYELOFIBROSIS
     Dosage: 26.5 MG/KG (BODYWEIGHT/DAY=5 TABLETS A 360MG)
     Route: 065
     Dates: start: 20190124
  19. ENBREL [Concomitant]
     Active Substance: ETANERCEPT
     Indication: RHEUMATOID ARTHRITIS
     Dosage: 7.14 MG, BIW
     Route: 065
     Dates: start: 201805, end: 20180902
  20. ALLOPURINOL. [Concomitant]
     Active Substance: ALLOPURINOL
     Indication: PROPHYLAXIS
     Dosage: 100 MG, QD
     Route: 065
     Dates: start: 201805
  21. HYDROXYCARBAMIDE [Suspect]
     Active Substance: HYDROXYUREA
     Dosage: 500 MG, BID
     Route: 065
     Dates: start: 20181024, end: 20190304

REACTIONS (13)
  - C-reactive protein decreased [Unknown]
  - Blood bilirubin increased [Unknown]
  - Leukocytosis [Not Recovered/Not Resolved]
  - Blood folate decreased [Unknown]
  - C-reactive protein increased [Unknown]
  - Blood lactate dehydrogenase increased [Unknown]
  - Blood uric acid increased [Unknown]
  - Back pain [Unknown]
  - Anaemia [Not Recovered/Not Resolved]
  - Serum ferritin increased [Unknown]
  - Concomitant disease aggravated [Not Recovered/Not Resolved]
  - Thrombocytopenia [Not Recovered/Not Resolved]
  - Blood urea increased [Unknown]

NARRATIVE: CASE EVENT DATE: 20180206
